FAERS Safety Report 7508607-X (Version None)
Quarter: 2011Q2

REPORT INFORMATION
  Report Type: 
  Country: None (occurrence: None)
  Receive Date: 20110527
  Receipt Date: 20110107
  Transmission Date: 20111010
  Serious: No
  Sender: FDA-Public Use
  Company Number: A0906022A

PATIENT
  Age: 44 Year
  Sex: Female
  Weight: 92.7 kg

DRUGS (13)
  1. WARFARIN SODIUM [Concomitant]
     Route: 048
  2. PEPCID [Concomitant]
     Route: 048
  3. IMODIUM [Concomitant]
     Route: 048
  4. FLOLAN [Suspect]
     Route: 042
     Dates: start: 20000908
  5. AMLODIPINE [Concomitant]
     Route: 048
  6. LOESTRIN 1.5/30 [Concomitant]
  7. LETAIRIS [Concomitant]
     Route: 048
     Dates: start: 20070701
  8. ASTELIN [Concomitant]
     Route: 045
  9. FISH OIL [Concomitant]
     Route: 048
  10. CALCIUM CARBONATE [Concomitant]
  11. AUGMENTIN [Concomitant]
     Route: 048
  12. FLOLAN [Suspect]
     Dosage: 27NGKM UNKNOWN
     Route: 042
     Dates: start: 20000908
  13. VITAMIN TAB [Concomitant]

REACTIONS (3)
  - PAIN IN JAW [None]
  - DIARRHOEA [None]
  - FLUSHING [None]
